FAERS Safety Report 8886999 (Version 1)
Quarter: 2012Q4

REPORT INFORMATION
  Report Type: 
  Country: JP (occurrence: JP)
  Receive Date: 20121105
  Receipt Date: 20121105
  Transmission Date: 20130627
  Serious: Yes (Death, Other)
  Sender: FDA-Public Use
  Company Number: JP-ROCHE-1146463

PATIENT
  Age: 79 Year
  Sex: Male

DRUGS (5)
  1. AVASTIN [Suspect]
     Indication: ANAL CANCER
     Dosage: 5mg/m^2
     Route: 041
     Dates: start: 20101012, end: 20101122
  2. LEVOFOLINATE [Concomitant]
     Indication: ANAL CANCER
     Route: 041
     Dates: start: 20101006, end: 20110620
  3. ELPLAT [Concomitant]
     Indication: ANAL CANCER
     Route: 041
     Dates: start: 20101006, end: 20110620
  4. 5-FU [Concomitant]
     Indication: ANAL CANCER
     Route: 040
     Dates: start: 20101006, end: 20110620
  5. 5-FU [Concomitant]
     Indication: ANAL CANCER
     Route: 041
     Dates: start: 20101006, end: 20110620

REACTIONS (2)
  - Gastric ulcer haemorrhage [Unknown]
  - Road traffic accident [Fatal]
